FAERS Safety Report 24978544 (Version 1)
Quarter: 2025Q1

REPORT INFORMATION
  Report Type: Spontaneous
  Country: CA (occurrence: CA)
  Receive Date: 20250218
  Receipt Date: 20250218
  Transmission Date: 20250409
  Serious: Yes (Other)
  Sender: PFIZER
  Company Number: CA-PFIZER INC-202500035511

PATIENT
  Age: 42 Year
  Sex: Female

DRUGS (5)
  1. RUXIENCE [Suspect]
     Active Substance: RITUXIMAB-PVVR
     Indication: Hepatitis
     Route: 042
     Dates: start: 20250212, end: 20250212
  2. RUXIENCE [Suspect]
     Active Substance: RITUXIMAB-PVVR
     Indication: Sjogren^s syndrome
  3. RUXIENCE [Suspect]
     Active Substance: RITUXIMAB-PVVR
     Indication: Colitis
  4. RUXIENCE [Suspect]
     Active Substance: RITUXIMAB-PVVR
     Indication: Erythema nodosum
  5. XELJANZ [Concomitant]
     Active Substance: TOFACITINIB CITRATE
     Dosage: 10 MG, 2X/DAY
     Route: 048
     Dates: start: 20210306

REACTIONS (3)
  - Throat tightness [Recovering/Resolving]
  - Paraesthesia oral [Recovering/Resolving]
  - Pharyngeal paraesthesia [Recovering/Resolving]

NARRATIVE: CASE EVENT DATE: 20250212
